FAERS Safety Report 8950517 (Version 4)
Quarter: 2013Q4

REPORT INFORMATION
  Report Type: Report from Study
  Country: US (occurrence: US)
  Receive Date: 20121206
  Receipt Date: 20131112
  Transmission Date: 20140711
  Serious: Yes (Other)
  Sender: FDA-Public Use
  Company Number: US-US-EMD SERONO, INC.-7179574

PATIENT
  Sex: Female

DRUGS (4)
  1. REBIF [Suspect]
     Indication: MULTIPLE SCLEROSIS
     Route: 058
     Dates: start: 2004, end: 2009
  2. REBIF [Suspect]
     Route: 058
     Dates: start: 20121126
  3. REBIF [Suspect]
     Route: 058
  4. ALEVE [Concomitant]
     Indication: PREMEDICATION

REACTIONS (2)
  - Cervix carcinoma [Recovered/Resolved]
  - Injection site pain [Unknown]
